FAERS Safety Report 5846886-5 (Version None)
Quarter: 2008Q3

REPORT INFORMATION
  Report Type: 
  Country: None (occurrence: None)
  Receive Date: 20080815
  Receipt Date: 20080805
  Transmission Date: 20090109
  Serious: Yes (Hospitalization)
  Sender: FDA-Public Use
  Company Number: GB-PFIZER INC-2008067774

PATIENT
  Sex: Male

DRUGS (2)
  1. NICOTROL [Suspect]
     Route: 055
  2. NICORETTE [Suspect]
     Route: 062
     Dates: start: 20070101

REACTIONS (7)
  - APPLICATION SITE ERYTHEMA [None]
  - APPLICATION SITE SWELLING [None]
  - HYPERSENSITIVITY [None]
  - LOWER RESPIRATORY TRACT INFECTION [None]
  - NAUSEA [None]
  - RETCHING [None]
  - URTICARIA [None]
